FAERS Safety Report 20582969 (Version 2)
Quarter: 2022Q2

REPORT INFORMATION
  Report Type: Spontaneous
  Country: JP (occurrence: JP)
  Receive Date: 20220311
  Receipt Date: 20220421
  Transmission Date: 20220720
  Serious: Yes (Other)
  Sender: FDA-Public Use
  Company Number: JP-JNJFOC-20220207540

PATIENT
  Age: 77 Year
  Sex: Female
  Weight: 40 kg

DRUGS (19)
  1. UPTRAVI [Suspect]
     Active Substance: SELEXIPAG
     Indication: Pulmonary hypertension
     Route: 048
  2. TRACLEER [Suspect]
     Active Substance: BOSENTAN
     Indication: Pulmonary hypertension
     Route: 048
  3. ADEMPAS [Suspect]
     Active Substance: RIOCIGUAT
     Indication: Pulmonary hypertension
     Route: 048
  4. XARELTO [Concomitant]
     Active Substance: RIVAROXABAN
     Dates: start: 2018
  5. CLARITHROMYCIN [Concomitant]
     Active Substance: CLARITHROMYCIN
  6. RIFAMPIN [Concomitant]
     Active Substance: RIFAMPIN
  7. INOVAN [DOPAMINE HYDROCHLORIDE] [Concomitant]
     Dates: start: 202112
  8. SOLITA-T1 [Concomitant]
     Dates: start: 202112
  9. CARPERITIDE [Concomitant]
     Active Substance: CARPERITIDE
     Dates: start: 202112
  10. DOBUTAMINE HYDROCHLORIDE [Concomitant]
     Active Substance: DOBUTAMINE HYDROCHLORIDE
     Dates: start: 202112
  11. NOREPINEPHRINE HYDROCHLORIDE, (+/-)- [Concomitant]
     Active Substance: NOREPINEPHRINE HYDROCHLORIDE, (+/-)-
     Dates: start: 202112
  12. SIVELESTAT NA [Concomitant]
     Dates: start: 202112
  13. PROPOFOL [Concomitant]
     Active Substance: PROPOFOL
     Dates: start: 202112
  14. PRECEDEX [Concomitant]
     Active Substance: DEXMEDETOMIDINE HYDROCHLORIDE
     Dates: start: 202112
  15. LASIX [Concomitant]
     Active Substance: FUROSEMIDE
     Dates: start: 202112
  16. KCL CORRECTIVE [Concomitant]
     Dates: start: 202112
  17. HEPARIN SODIUM [Concomitant]
     Active Substance: HEPARIN SODIUM
     Dates: start: 202112
  18. WARFARIN [Concomitant]
     Active Substance: WARFARIN
     Dates: start: 202112
  19. NITRIC OXIDE [Concomitant]
     Active Substance: NITRIC OXIDE
     Dates: start: 202112

REACTIONS (1)
  - Pulmonary oedema [Recovered/Resolved]

NARRATIVE: CASE EVENT DATE: 20211209
